FAERS Safety Report 21144233 (Version 1)
Quarter: 2022Q3

REPORT INFORMATION
  Report Type: Spontaneous
  Country: ES (occurrence: ES)
  Receive Date: 20220728
  Receipt Date: 20220728
  Transmission Date: 20221027
  Serious: Yes (Death, Other)
  Sender: FDA-Public Use
  Company Number: ES-ASTELLAS-2022US026364

PATIENT
  Age: 73 Year
  Sex: Male

DRUGS (6)
  1. POTELIGEO [Suspect]
     Active Substance: MOGAMULIZUMAB-KPKC
     Indication: Cutaneous T-cell lymphoma
     Dosage: UNK, UNKNOWN FREQ. (FIVE DOSE)
     Route: 065
  2. CYCLOPHOSPHAMIDE [Suspect]
     Active Substance: CYCLOPHOSPHAMIDE
     Indication: Cutaneous T-cell lymphoma
     Dosage: UNK
     Route: 065
  3. BENDAMUSTINE HYDROCHLORIDE [Suspect]
     Active Substance: BENDAMUSTINE HYDROCHLORIDE
     Indication: Cutaneous T-cell lymphoma
     Dosage: UNK, CYCLIC
     Route: 042
  4. BRENTUXIMAB [Suspect]
     Active Substance: BRENTUXIMAB
     Indication: Cutaneous T-cell lymphoma
     Dosage: UNK
     Route: 065
  5. DOXORUBICIN [Suspect]
     Active Substance: DOXORUBICIN
     Indication: Cutaneous T-cell lymphoma
     Dosage: UNK
     Route: 065
  6. PREDNISONE [Suspect]
     Active Substance: PREDNISONE
     Indication: Cutaneous T-cell lymphoma
     Dosage: UNK
     Route: 065

REACTIONS (2)
  - Death [Fatal]
  - Malignant neoplasm progression [Unknown]
